FAERS Safety Report 19224831 (Version 1)
Quarter: 2021Q2

REPORT INFORMATION
  Report Type: Report from Study
  Country: DE (occurrence: DE)
  Receive Date: 20210506
  Receipt Date: 20210506
  Transmission Date: 20210717
  Serious: Yes (Hospitalization)
  Sender: FDA-Public Use
  Company Number: DE-TEVA-2020-DE-1221177

PATIENT
  Age: 67 Year
  Sex: Female
  Weight: 62 kg

DRUGS (8)
  1. MYOCET [Suspect]
     Active Substance: DOXORUBICIN
     Indication: BREAST CANCER METASTATIC
     Route: 042
     Dates: start: 20190207, end: 20190613
  2. ERIBULIN [Suspect]
     Active Substance: ERIBULIN
     Indication: BREAST CANCER METASTATIC
     Dosage: D1 + D8 Q3W
     Route: 042
     Dates: start: 20190919, end: 20200220
  3. NETUPITANT [Concomitant]
     Active Substance: NETUPITANT
     Indication: PROPHYLAXIS OF NAUSEA AND VOMITING
     Route: 048
  4. DEXAMETHASON [Concomitant]
     Active Substance: DEXAMETHASONE
     Indication: PROPHYLAXIS OF NAUSEA AND VOMITING
  5. LAPATINIB [Suspect]
     Active Substance: LAPATINIB
     Indication: BREAST CANCER METASTATIC
     Dosage: 750 MILLIGRAM DAILY;
     Route: 048
     Dates: start: 20190411, end: 20190828
  6. PALONOSETRON. [Concomitant]
     Active Substance: PALONOSETRON HYDROCHLORIDE
     Indication: PROPHYLAXIS OF NAUSEA AND VOMITING
     Route: 048
  7. VINORELBINE [Suspect]
     Active Substance: VINORELBINE TARTRATE
     Indication: BREAST CANCER METASTATIC
     Dosage: Q1W
     Route: 042
     Dates: start: 20200311, end: 20200318
  8. DENOSUMAB [Suspect]
     Active Substance: DENOSUMAB
     Indication: METASTASES TO BONE
     Dosage: Q4W
     Route: 058
     Dates: start: 20160515, end: 20200311

REACTIONS (2)
  - Tooth infection [Recovered/Resolved]
  - Osteonecrosis of jaw [Recovered/Resolved]

NARRATIVE: CASE EVENT DATE: 20200329
